FAERS Safety Report 22767687 (Version 2)
Quarter: 2023Q4

REPORT INFORMATION
  Report Type: Report from Study
  Country: CO (occurrence: CO)
  Receive Date: 20230731
  Receipt Date: 20231015
  Transmission Date: 20240109
  Serious: Yes (Other)
  Sender: FDA-Public Use
  Company Number: CO-002147023-PHHY2017CO005403

PATIENT
  Age: 74 Year
  Sex: Female
  Weight: 72 kg

DRUGS (3)
  1. COSENTYX [Suspect]
     Active Substance: SECUKINUMAB
     Indication: Psoriasis
     Dosage: 300 MG, QMO
     Route: 058
     Dates: start: 20160705
  2. COSENTYX [Suspect]
     Active Substance: SECUKINUMAB
     Dosage: 300 MG, QMO
     Route: 058
     Dates: start: 20170705
  3. COSENTYX [Suspect]
     Active Substance: SECUKINUMAB
     Dosage: 300 MG, QMO
     Route: 058

REACTIONS (15)
  - Portal vein occlusion [Unknown]
  - Rash [Unknown]
  - Pruritus [Unknown]
  - Discomfort [Unknown]
  - Pain [Unknown]
  - Inflammation [Unknown]
  - Burning sensation [Unknown]
  - Depression [Unknown]
  - Ear infection [Unknown]
  - Influenza [Unknown]
  - Skin plaque [Unknown]
  - Illness [Unknown]
  - Cough [Unknown]
  - General physical health deterioration [Unknown]
  - Urinary tract infection [Unknown]

NARRATIVE: CASE EVENT DATE: 20161229
